FAERS Safety Report 11263304 (Version 4)
Quarter: 2015Q3

REPORT INFORMATION
  Report Type: Spontaneous
  Country: US (occurrence: US)
  Receive Date: 20150712
  Receipt Date: 20150811
  Transmission Date: 20151125
  Serious: Yes (Death, Hospitalization, Other)
  Sender: FDA-Public Use
  Company Number: US-JNJFOC-20150706064

PATIENT
  Age: 87 Year
  Sex: Male

DRUGS (20)
  1. ZOVIRAX [Concomitant]
     Active Substance: ACYCLOVIR
     Route: 048
  2. COMPAZINE [Concomitant]
     Active Substance: PROCHLORPERAZINE MALEATE
     Route: 048
  3. CYANOCOBALAMIN. [Concomitant]
     Active Substance: CYANOCOBALAMIN
     Indication: SUPPORTIVE CARE
     Route: 030
  4. IMBRUVICA [Suspect]
     Active Substance: IBRUTINIB
     Indication: CHRONIC LYMPHOCYTIC LEUKAEMIA
     Route: 048
     Dates: start: 20150622, end: 20150720
  5. LEVAQUIN [Concomitant]
     Active Substance: LEVOFLOXACIN
     Route: 048
  6. IMBRUVICA [Suspect]
     Active Substance: IBRUTINIB
     Indication: CHRONIC LYMPHOCYTIC LEUKAEMIA
     Route: 048
  7. IVIGLOB EX [Concomitant]
     Active Substance: HUMAN IMMUNOGLOBULIN G
     Indication: PROPHYLAXIS
     Route: 042
  8. BACTRIM [Concomitant]
     Active Substance: SULFAMETHOXAZOLE\TRIMETHOPRIM
     Route: 048
  9. COD LIVER OIL [Concomitant]
     Active Substance: COD LIVER OIL
     Route: 048
  10. SYNTHROID [Concomitant]
     Active Substance: LEVOTHYROXINE SODIUM
     Indication: HYPOTHYROIDISM
     Route: 048
  11. FIBER SUPPLEMENT [Concomitant]
     Route: 048
  12. ARZERRA [Concomitant]
     Active Substance: OFATUMUMAB
     Indication: CHRONIC LYMPHOCYTIC LEUKAEMIA
     Route: 042
     Dates: start: 20150521
  13. ACETAMINOPHEN. [Concomitant]
     Active Substance: ACETAMINOPHEN
     Route: 048
  14. CRANBERRY TABS [Concomitant]
     Route: 048
  15. SAW PALMETTO [Concomitant]
     Active Substance: SAW PALMETTO
  16. PREDNISONE. [Concomitant]
     Active Substance: PREDNISONE
     Indication: SUPPORTIVE CARE
     Route: 048
  17. FOLIC ACID. [Concomitant]
     Active Substance: FOLIC ACID
  18. FUROSEMIDE. [Concomitant]
     Active Substance: FUROSEMIDE
  19. ZYLOPRIM [Concomitant]
     Active Substance: ALLOPURINOL
     Route: 048
  20. DECADRON (DEXAMETHASONE SODIUM PHOSPHATE) [Concomitant]
     Active Substance: DEXAMETHASONE SODIUM PHOSPHATE
     Indication: SUPPORTIVE CARE

REACTIONS (9)
  - Cough [Unknown]
  - Disease progression [Fatal]
  - Acute kidney injury [Unknown]
  - Nausea [Unknown]
  - Gingival bleeding [Not Recovered/Not Resolved]
  - Atrial fibrillation [Recovered/Resolved]
  - Haemoglobin decreased [Recovered/Resolved]
  - Chest pain [Not Recovered/Not Resolved]
  - Decreased appetite [Not Recovered/Not Resolved]

NARRATIVE: CASE EVENT DATE: 2015
